FAERS Safety Report 10272922 (Version 1)
Quarter: 2014Q1

REPORT INFORMATION
  Report Type: Spontaneous
  Country: US (occurrence: None)
  Receive Date: 20140306
  Receipt Date: 20140306
  Transmission Date: 20141002
  Serious: Yes (Other)
  Sender: FDA-Public Use
  Company Number: 163-21880-13061016

PATIENT
  Age: 67 Year
  Sex: Male

DRUGS (14)
  1. REVLIMID [Suspect]
     Indication: PLASMA CELL MYELOMA
     Dosage: 25 MG, 21 IN 28 D, PO
     Route: 048
     Dates: start: 20130516, end: 20130828
  2. OXYCODONE [Suspect]
     Indication: PAIN
     Dates: end: 201306
  3. OXYCONTIN [Suspect]
     Indication: PAIN
     Dosage: 80 MG, 2 IN 1 D, PO
     Route: 048
     Dates: end: 20130603
  4. ALFUZOSIN HCL ER [Concomitant]
  5. ATORVASTATIN CALCIUM (ATORVASTATIN CALCIUM) [Concomitant]
  6. CYCLOBENZAPRINE HCL (CYCLOBENZAPRINE HYDROCHLORIDE) [Concomitant]
  7. DEXAMETHASONE (DEXAMETHASONE) [Concomitant]
  8. HYDROCHLOROTHIAZIDE (HYDROCHLOROTHIAZIDE) [Concomitant]
  9. LOSARTAN POTASSIUM (LOSARTAN POTASSIUM) [Concomitant]
  10. METOPROLOL TARTRATE (METOPROLOL TARTRATE) [Concomitant]
  11. OMEPRAZOLE (OMEPRAZOLE) [Concomitant]
  12. NEUPOGEN (FILGRASTIM) (INJECTION) [Concomitant]
  13. ZOMETA (ZOLEDRONIC ACID) [Concomitant]
  14. MILK OF MAGNESIA (MAGNESIUM HYDROXIDE) [Concomitant]

REACTIONS (6)
  - Platelet count decreased [None]
  - Weight decreased [None]
  - White blood cell count decreased [None]
  - Nausea [None]
  - Malaise [None]
  - Decreased appetite [None]
